FAERS Safety Report 23093133 (Version 1)
Quarter: 2023Q4

REPORT INFORMATION
  Report Type: Report from Study
  Country: US (occurrence: None)
  Receive Date: 20231022
  Receipt Date: 20231022
  Transmission Date: 20240110
  Serious: Yes (Other)
  Sender: FDA-Public Use
  Company Number: 2023A237156

PATIENT
  Age: 23549 Day
  Sex: Female

DRUGS (1)
  1. CALQUENCE [Suspect]
     Active Substance: ACALABRUTINIB
     Indication: Chronic lymphocytic leukaemia
     Route: 048
     Dates: start: 20220122

REACTIONS (8)
  - Abdominal mass [Unknown]
  - Inguinal mass [Unknown]
  - Neck mass [Unknown]
  - Axillary mass [Unknown]
  - Limb mass [Unknown]
  - Weight decreased [Unknown]
  - Drug ineffective [Unknown]
  - Product dose omission issue [Unknown]

NARRATIVE: CASE EVENT DATE: 20231016
